FAERS Safety Report 13254403 (Version 1)
Quarter: 2017Q1

REPORT INFORMATION
  Report Type: Spontaneous
  Country: JP (occurrence: JP)
  Receive Date: 20170221
  Receipt Date: 20170221
  Transmission Date: 20170428
  Serious: Yes (Death, Other)
  Sender: FDA-Public Use
  Company Number: JP-SUN PHARMACEUTICAL INDUSTRIES LTD-2017RR-131445

PATIENT
  Age: 48 Year
  Sex: Female
  Weight: 51 kg

DRUGS (5)
  1. CARBOPLATIN. [Suspect]
     Active Substance: CARBOPLATIN
     Indication: NEUROENDOCRINE CARCINOMA
     Dosage: 400 MG, DAY 1
     Route: 065
  2. METYRAPONE [Concomitant]
     Active Substance: METYRAPONE
     Indication: HYPERADRENOCORTICISM
     Route: 065
  3. ETOPOSIDE. [Suspect]
     Active Substance: ETOPOSIDE
     Indication: NEUROENDOCRINE CARCINOMA
     Dosage: 80 MG/M2, DAY 1-3
     Route: 065
  4. PREDNISOLONE. [Concomitant]
     Active Substance: PREDNISOLONE
     Indication: PRODUCT USED FOR UNKNOWN INDICATION
     Dosage: 30 MG, DAILY
     Route: 048
  5. CYCLOPHOSPHAMIDE. [Concomitant]
     Active Substance: CYCLOPHOSPHAMIDE
     Indication: PRODUCT USED FOR UNKNOWN INDICATION
     Route: 048

REACTIONS (5)
  - Pseudomonas infection [Fatal]
  - Respiratory disorder [Fatal]
  - Eye infection fungal [Fatal]
  - Febrile neutropenia [Fatal]
  - Bone marrow failure [Fatal]
